FAERS Safety Report 18121768 (Version 1)
Quarter: 2020Q3

REPORT INFORMATION
  Report Type: Spontaneous
  Country: US (occurrence: US)
  Receive Date: 20200807
  Receipt Date: 20200807
  Transmission Date: 20201103
  Serious: No
  Sender: FDA-Public Use
  Company Number: NVSC2020US215505

PATIENT
  Sex: Female

DRUGS (4)
  1. ESTRADIOL. [Suspect]
     Active Substance: ESTRADIOL
     Indication: PRODUCT USED FOR UNKNOWN INDICATION
     Route: 065
  2. MINIVELLE [Suspect]
     Active Substance: ESTRADIOL
     Dosage: 0.0375MG/DAY, 01 TRANSDERMAL PATHCH, CHANGED 2 TIMES IN A WEEK
     Route: 062
     Dates: start: 202007
  3. VIVELLE?DOT [Suspect]
     Active Substance: ESTRADIOL
     Indication: PRODUCT USED FOR UNKNOWN INDICATION
     Route: 065
  4. MINIVELLE [Suspect]
     Active Substance: ESTRADIOL
     Indication: MENOPAUSAL SYMPTOMS
     Dosage: 0.0375MG/DAY, 01 TRANSDERMAL PATHCH, CHANGED 2 TIMES IN A WEEK
     Route: 062
     Dates: end: 202005

REACTIONS (2)
  - Insomnia [Unknown]
  - Depression [Unknown]
